FAERS Safety Report 7403564-9 (Version None)
Quarter: 2011Q1

REPORT INFORMATION
  Report Type: 
  Country: None (occurrence: None)
  Receive Date: 20110331
  Receipt Date: 20110316
  Transmission Date: 20110831
  Serious: Yes (Hospitalization)
  Sender: FDA-Public Use
  Company Number: 029400

PATIENT
  Sex: Male

DRUGS (1)
  1. CIMZIA [Suspect]
     Indication: CROHN'S DISEASE
     Dosage: (FORM : PFS SUBCUTANEOUS)
     Route: 058
     Dates: start: 20100722

REACTIONS (9)
  - RECTAL ABSCESS [None]
  - PSYCHOTIC DISORDER [None]
  - ABDOMINAL PAIN [None]
  - DIARRHOEA [None]
  - SUICIDAL IDEATION [None]
  - PROCTALGIA [None]
  - COLECTOMY [None]
  - FISTULA [None]
  - HAEMATOCHEZIA [None]
